FAERS Safety Report 4286335-4 (Version None)
Quarter: 2004Q1

REPORT INFORMATION
  Report Type: 
  Country: None (occurrence: None)
  Receive Date: 20040121
  Receipt Date: 20030311
  Transmission Date: 20041129
  Serious: Yes (Hospitalization)
  Sender: FDA-Public Use
  Company Number: A03200300531

PATIENT
  Age: 73 Year
  Sex: Female
  Weight: 90.7194 kg

DRUGS (9)
  1. PLAVIX [Suspect]
     Indication: CEREBROVASCULAR ACCIDENT
     Dosage: 75 MG QD - ORAL
     Route: 048
     Dates: start: 20030307, end: 20030307
  2. PLAVIX [Suspect]
     Indication: HYPERLIPIDAEMIA
     Dosage: 75 MG QD - ORAL
     Route: 048
     Dates: start: 20030307, end: 20030307
  3. PLAVIX [Suspect]
     Indication: TRANSIENT ISCHAEMIC ATTACK
     Dosage: 75 MG QD - ORAL
     Route: 048
     Dates: start: 20030307, end: 20030307
  4. TRIAMTERENE AND HYDROCHLOROTHIAZIDE [Concomitant]
  5. PRAVASTATIN SODIUM [Concomitant]
  6. METOPROLOL SUCCINATE [Concomitant]
  7. POTASSIUM [Concomitant]
  8. MAGNESIUM OXIDE [Concomitant]
  9. ACETYLSALICYLIC ACID SRT [Concomitant]

REACTIONS (1)
  - ANGIONEUROTIC OEDEMA [None]
